FAERS Safety Report 20237065 (Version 2)
Quarter: 2022Q1

REPORT INFORMATION
  Report Type: Spontaneous
  Country: US (occurrence: US)
  Receive Date: 20211228
  Receipt Date: 20220118
  Transmission Date: 20220423
  Serious: No
  Sender: FDA-Public Use
  Company Number: US-ALKERMES INC.-ALK-2021-006582

PATIENT
  Sex: Female

DRUGS (2)
  1. ARISTADA [Suspect]
     Active Substance: ARIPIPRAZOLE LAUROXIL
     Indication: Schizophrenia
     Dosage: 1064 MILLIGRAM, Q2MO
     Route: 030
     Dates: start: 202110, end: 202110
  2. ARISTADA [Suspect]
     Active Substance: ARIPIPRAZOLE LAUROXIL
     Dosage: UNK
     Route: 030
     Dates: start: 2019, end: 2019

REACTIONS (1)
  - Product dose omission issue [Recovered/Resolved]
